FAERS Safety Report 21205675 (Version 14)
Quarter: 2022Q4

REPORT INFORMATION
  Report Type: Report from Study
  Country: GB (occurrence: GB)
  Receive Date: 20220812
  Receipt Date: 20221227
  Transmission Date: 20230113
  Serious: Yes (Life-Threatening, Hospitalization, Other)
  Sender: FDA-Public Use
  Company Number: GB-CELLTRION INC.-2022GB012663

PATIENT

DRUGS (388)
  1. TRASTUZUMAB [Suspect]
     Active Substance: TRASTUZUMAB
     Indication: HER2 positive breast cancer
     Dosage: 399 MILLIGRAM EVERY 3 WEEKS SUBSEQUENT DOSE RECEIVED ON 11/NOV/2018 (CUMULATIVE DOSE: 5985.0 MG)
     Route: 042
     Dates: start: 20150203, end: 20150203
  2. TRASTUZUMAB [Suspect]
     Active Substance: TRASTUZUMAB
     Indication: Breast cancer metastatic
     Dosage: 584 MG TOTAL LOADING DOSE EVERY 3 WEEKS
     Route: 042
     Dates: start: 20150209, end: 20150209
  3. TRASTUZUMAB [Suspect]
     Active Substance: TRASTUZUMAB
     Indication: Breast cancer
     Dosage: 504 MILLIGRAM (LOADING DOSE) (CUMULATIVE DOSE: 22176.0 MG)
     Route: 048
     Dates: start: 20150209, end: 20150209
  4. TRASTUZUMAB [Suspect]
     Active Substance: TRASTUZUMAB
     Indication: Breast cancer metastatic
     Dosage: 378 MILLIGRAM EVERY 3 WEEKS (MAINTENANCE DOSE) (CUMULATIVE DOSE TO FIRST REACTION: 773.25 MG)
     Route: 042
     Dates: start: 20150303, end: 20151021
  5. TRASTUZUMAB [Suspect]
     Active Substance: TRASTUZUMAB
     Dosage: 420 MILLIGRAM EVERY 3 WEEKS
     Route: 042
     Dates: start: 20151111, end: 20151202
  6. TRASTUZUMAB [Suspect]
     Active Substance: TRASTUZUMAB
     Dosage: 378 MILLIGRAM EVERY 3 WEEKS (378 MG, Q3W)CUMULATIVE DOSE TO FIRST REACTION: 4518.75 MG
     Route: 048
     Dates: start: 20151222, end: 20160113
  7. TRASTUZUMAB [Suspect]
     Active Substance: TRASTUZUMAB
     Dosage: 399 MILLIGRAM EVERY 3 WEEKS (399 MG, Q3W) (CUMULATIVE DOSE: 950.0 MG)
     Route: 042
     Dates: start: 20160203, end: 20160203
  8. TRASTUZUMAB [Suspect]
     Active Substance: TRASTUZUMAB
     Dosage: 378 MILLIGRAM EVERY 3 WEEKS(CUMULATIVE DOSE:6048.0 MG)
     Route: 048
     Dates: start: 20160224, end: 20160406
  9. TRASTUZUMAB [Suspect]
     Active Substance: TRASTUZUMAB
     Dosage: EVERY 3 WEEKS
     Route: 042
  10. TRASTUZUMAB [Suspect]
     Active Substance: TRASTUZUMAB
     Dosage: 399 MILLIGRAM EVERY 3 WEEKS SUBSEQUENT DOSE RECEIVED ON 11/NOV/2018
     Route: 042
     Dates: start: 20151111, end: 20151202
  11. TRASTUZUMAB [Suspect]
     Active Substance: TRASTUZUMAB
     Dosage: 420MG EVERY THREE WEEKS (420 MG, Q3W)
     Route: 042
     Dates: start: 20160404, end: 20170111
  12. TRASTUZUMAB [Suspect]
     Active Substance: TRASTUZUMAB
     Dosage: 420 MILLIGRAM EVERY 3 WEEKS (CUMULATIVE DOSE: 12810 MG)
     Route: 042
     Dates: start: 20160427, end: 20170111
  13. TRASTUZUMAB [Suspect]
     Active Substance: TRASTUZUMAB
     Dosage: 240 MG
     Route: 042
     Dates: start: 20170201
  14. TRASTUZUMAB [Suspect]
     Active Substance: TRASTUZUMAB
     Dosage: 399 MG EVERY 3 WEEKS(CUMULATIVE DOSE: 4389.0 MG)
     Route: 042
     Dates: start: 20151111, end: 20151202
  15. TRASTUZUMAB [Suspect]
     Active Substance: TRASTUZUMAB
     Dosage: 399 MG EVERY 3 WEEKS (CUMULATIVE DOSE: 950.0MG)
     Route: 042
     Dates: start: 20150203, end: 20150203
  16. TRASTUZUMAB [Suspect]
     Active Substance: TRASTUZUMAB
     Dosage: 399 MG EVERY 3 WEEKS (CUMULATIVE DOSE: 950.0MG)
     Route: 042
     Dates: start: 20150203, end: 20150203
  17. TRASTUZUMAB [Suspect]
     Active Substance: TRASTUZUMAB
     Dosage: 399 MG EVERY 3 WEEKS (CUMULATIVE DOSE: 950.0MG)
     Route: 042
     Dates: start: 20150203, end: 20150203
  18. TRASTUZUMAB [Suspect]
     Active Substance: TRASTUZUMAB
     Dosage: 399 MG EVERY 3 WEEKS (CUMULATIVE DOSE: 950.0MG)
     Route: 042
     Dates: start: 20150203, end: 20150203
  19. TRASTUZUMAB [Suspect]
     Active Substance: TRASTUZUMAB
     Dosage: 240 MG
     Route: 042
     Dates: start: 20170201, end: 20170722
  20. TRASTUZUMAB [Suspect]
     Active Substance: TRASTUZUMAB
     Dosage: 240 MG
     Route: 042
     Dates: start: 20170201
  21. TRASTUZUMAB [Suspect]
     Active Substance: TRASTUZUMAB
     Dosage: 240 MG
     Route: 042
     Dates: start: 20170201
  22. TRASTUZUMAB [Suspect]
     Active Substance: TRASTUZUMAB
     Dosage: 240 MG
     Route: 042
     Dates: start: 20170201
  23. TRASTUZUMAB [Suspect]
     Active Substance: TRASTUZUMAB
     Dosage: 378 MILLIGRAM EVERY 3 WEEKS (MAINTENANCE DOSE) (CUMULATIVE DOSE TO FIRST REACTION: 773.25 MG)
     Route: 042
     Dates: start: 20150303, end: 20151021
  24. TRASTUZUMAB [Suspect]
     Active Substance: TRASTUZUMAB
     Dosage: 378 MILLIGRAM EVERY 3 WEEKS, MAINTENANCE DOSE, (CUMULATIVE DOSE TO FIRST REACTION: 773.25 MG)
     Route: 042
     Dates: start: 20150303, end: 20151021
  25. TRASTUZUMAB [Suspect]
     Active Substance: TRASTUZUMAB
     Dosage: 378 MILLIGRAM EVERY 3 WEEKS, MAINTENANCE DOSE, (CUMULATIVE DOSE TO FIRST REACTION: 773.25 MG)
     Route: 042
     Dates: start: 20150303, end: 20151021
  26. TRASTUZUMAB [Suspect]
     Active Substance: TRASTUZUMAB
     Dosage: 378 MILLIGRAM EVERY 3 WEEKS, MAINTENANCE DOSE, (CUMULATIVE DOSE TO FIRST REACTION: 773.25 MG)
     Route: 042
     Dates: start: 20150303, end: 20151021
  27. TRASTUZUMAB [Suspect]
     Active Substance: TRASTUZUMAB
     Dosage: 399 MILLIGRAM EVERY 3 WEEKS (CUMULATIVE DOSE TO FIRST REACTION: 3990.7917 MG)
     Route: 042
     Dates: start: 20151111, end: 20151202
  28. TRASTUZUMAB [Suspect]
     Active Substance: TRASTUZUMAB
     Dosage: 399 MILLIGRAM EVERY 3 WEEKS (CUMULATIVE DOSE TO FIRST REACTION: 3990.7917 MG)
     Route: 042
     Dates: start: 20151111, end: 20151202
  29. TRASTUZUMAB [Suspect]
     Active Substance: TRASTUZUMAB
     Dosage: 399 MILLIGRAM EVERY 3 WEEKS (CUMULATIVE DOSE TO FIRST REACTION: 3990.7917 MG)
     Route: 042
     Dates: start: 20151111, end: 20151202
  30. TRASTUZUMAB [Suspect]
     Active Substance: TRASTUZUMAB
     Dosage: 399 MILLIGRAM EVERY 3 WEEKS (CUMULATIVE DOSE TO FIRST REACTION: 3990.7917 MG)
     Route: 042
     Dates: start: 20151111, end: 20151202
  31. TRASTUZUMAB [Suspect]
     Active Substance: TRASTUZUMAB
     Dosage: 399 MILLIGRAM EVERY 3 WEEKS (CUMULATIVE DOSE TO FIRST REACTION: 3990.7917 MG)
     Route: 042
     Dates: start: 20151111, end: 20151202
  32. TRASTUZUMAB [Suspect]
     Active Substance: TRASTUZUMAB
     Dosage: 504 MILLIGRAM (LOADING DOSE) TOTAL (CUMULATIVE DOSE: 22176.0MG)
     Route: 042
     Dates: start: 20150209, end: 20150209
  33. TRASTUZUMAB [Suspect]
     Active Substance: TRASTUZUMAB
     Dosage: 504 MILLIGRAM (LOADING DOSE) TOTAL (CUMULATIVE DOSE: 22176.0MG)
     Route: 042
     Dates: start: 20150209, end: 20150209
  34. TRASTUZUMAB [Suspect]
     Active Substance: TRASTUZUMAB
     Dosage: 504 MILLIGRAM (LOADING DOSE) TOTAL (CUMULATIVE DOSE: 22176.0MG)
     Route: 042
     Dates: start: 20150209, end: 20150209
  35. TRASTUZUMAB [Suspect]
     Active Substance: TRASTUZUMAB
     Dosage: 399 MILLIGRAM EVERY 3 WEEKS SUBSEQUENT DOSE RECEIVED ON 11/NOV/2018, (CUMULATIVE DOSE TO FIRST REACT
     Route: 042
     Dates: start: 20160203, end: 20160203
  36. TRASTUZUMAB [Suspect]
     Active Substance: TRASTUZUMAB
     Dosage: 399 MILLIGRAM EVERY 3 WEEKS SUBSEQUENT DOSE RECEIVED ON 11/NOV/2018, (CUMULATIVE DOSE TO FIRST REACT
     Route: 042
     Dates: start: 20160203, end: 20160203
  37. TRASTUZUMAB [Suspect]
     Active Substance: TRASTUZUMAB
     Dosage: 399 MILLIGRAM EVERY 3 WEEKS SUBSEQUENT DOSE RECEIVED ON 11/NOV/2018, (CUMULATIVE DOSE TO FIRST REACT
     Route: 042
     Dates: start: 20160203, end: 20160203
  38. TRASTUZUMAB [Suspect]
     Active Substance: TRASTUZUMAB
     Dosage: 399 MILLIGRAM EVERY 3 WEEKS SUBSEQUENT DOSE RECEIVED ON 11/NOV/2018, (CUMULATIVE DOSE TO FIRST REACT
     Route: 042
     Dates: start: 20160203, end: 20160203
  39. TRASTUZUMAB [Suspect]
     Active Substance: TRASTUZUMAB
     Dosage: 399 MILLIGRAM EVERY 3 WEEKS SUBSEQUENT DOSE RECEIVED ON 11/NOV/2018, (CUMULATIVE DOSE TO FIRST REACT
     Route: 042
     Dates: start: 20160203, end: 20160203
  40. TRASTUZUMAB [Suspect]
     Active Substance: TRASTUZUMAB
     Dosage: 378 MILLIGRAM EVERY 3 WEEKS (CUMULATIVE DOSE TO FIRST REACTION: 5670.75MG)
     Route: 042
     Dates: start: 20160224, end: 20160406
  41. TRASTUZUMAB [Suspect]
     Active Substance: TRASTUZUMAB
     Dosage: 378 MILLIGRAM EVERY 3 WEEKS (CUMULATIVE DOSE TO FIRST REACTION: 5670.75MG)
     Route: 042
     Dates: start: 20160224, end: 20160406
  42. TRASTUZUMAB [Suspect]
     Active Substance: TRASTUZUMAB
     Dosage: 378 MILLIGRAM EVERY 3 WEEKS (CUMULATIVE DOSE TO FIRST REACTION: 5670.75MG)
     Route: 042
     Dates: start: 20160224, end: 20160406
  43. TRASTUZUMAB [Suspect]
     Active Substance: TRASTUZUMAB
     Dosage: 378 MILLIGRAM EVERY 3 WEEKS (CUMULATIVE DOSE TO FIRST REACTION: 5670.75MG)
     Route: 042
     Dates: start: 20160224, end: 20160406
  44. TRASTUZUMAB [Suspect]
     Active Substance: TRASTUZUMAB
     Dosage: 378 MILLIGRAM EVERY 3 WEEKS (CUMULATIVE DOSE TO FIRST REACTION: 5670.75MG)
     Route: 042
     Dates: start: 20160224, end: 20160406
  45. TRASTUZUMAB [Suspect]
     Active Substance: TRASTUZUMAB
     Dosage: 378 MILLIGRAM EVERY 3 WEEKS (CUMULATIVE DOSE TO FIRST REACTION: 4518.75 MG)
     Route: 042
     Dates: start: 20151222, end: 20160113
  46. TRASTUZUMAB [Suspect]
     Active Substance: TRASTUZUMAB
     Dosage: 378 MILLIGRAM EVERY 3 WEEKS (CUMULATIVE DOSE TO FIRST REACTION: 4518.75 MG)
     Route: 042
     Dates: start: 20151222, end: 20160113
  47. TRASTUZUMAB [Suspect]
     Active Substance: TRASTUZUMAB
     Dosage: 378 MILLIGRAM EVERY 3 WEEKS (CUMULATIVE DOSE TO FIRST REACTION: 4518.75 MG)
     Route: 042
     Dates: start: 20151222, end: 20160113
  48. TRASTUZUMAB [Suspect]
     Active Substance: TRASTUZUMAB
     Dosage: 378 MILLIGRAM EVERY 3 WEEKS (CUMULATIVE DOSE TO FIRST REACTION: 4518.75 MG)
     Route: 042
     Dates: start: 20151222, end: 20160113
  49. TRASTUZUMAB [Suspect]
     Active Substance: TRASTUZUMAB
     Dosage: 420 MG EVERY 3 WEEKS (CUMULATIVE DOSE TO FIRST REACTION: 7560.0 MG)
     Route: 042
     Dates: start: 20160427, end: 20170111
  50. TRASTUZUMAB [Suspect]
     Active Substance: TRASTUZUMAB
     Dosage: 420 MG EVERY 3 WEEKS (CUMULATIVE DOSE TO FIRST REACTION: 7560.0 MG)
     Route: 042
     Dates: start: 20160427, end: 20170111
  51. DOCETAXEL [Suspect]
     Active Substance: DOCETAXEL
     Indication: HER2 positive breast cancer
     Dosage: 130MG EVERY WEEK (SOLUTION FOR INFUSION)
     Route: 042
     Dates: start: 20150210, end: 20150708
  52. DOCETAXEL [Suspect]
     Active Substance: DOCETAXEL
     Indication: Breast cancer metastatic
     Dosage: UNK
  53. DOCETAXEL [Suspect]
     Active Substance: DOCETAXEL
     Indication: Breast cancer
     Dosage: 130 MG, EVERY 3 WEEKS
     Route: 042
     Dates: start: 20150210, end: 20150708
  54. DOCETAXEL [Suspect]
     Active Substance: DOCETAXEL
     Dosage: 130 MILLIGRAM EVERY 3 WEEKS (CUMULATIVE DOSE:266.1905 MG) NUMBER OF CYCLE PER REGIMEN 6
     Route: 042
     Dates: start: 20150210, end: 20150708
  55. DOCETAXEL [Suspect]
     Active Substance: DOCETAXEL
     Indication: HER2 positive breast cancer
     Dosage: UNK
  56. DOCETAXEL [Suspect]
     Active Substance: DOCETAXEL
     Indication: Breast cancer metastatic
     Dosage: 130 MG, TIW
     Route: 048
     Dates: start: 20150210, end: 20150708
  57. DOCETAXEL [Suspect]
     Active Substance: DOCETAXEL
     Indication: Breast cancer
     Dosage: 130 MG, TIW  (NUMBER OF CYCLE PER REGIMEN 6)
     Route: 042
     Dates: start: 20150210, end: 20150708
  58. DOCETAXEL [Suspect]
     Active Substance: DOCETAXEL
     Dosage: 130 MG, TIW (NUMBER OF CYCLE PER REGIMEN 6)
     Route: 042
     Dates: start: 20150210, end: 20150708
  59. DOCETAXEL [Suspect]
     Active Substance: DOCETAXEL
     Dosage: UNK
  60. DOCETAXEL [Suspect]
     Active Substance: DOCETAXEL
     Dosage: UNK
  61. DOCETAXEL [Suspect]
     Active Substance: DOCETAXEL
     Dosage: UNK
  62. DOCETAXEL [Suspect]
     Active Substance: DOCETAXEL
     Dosage: 130 MG, TIW (NUMBER OF CYCLE PER REGIMEN 6)
     Route: 048
     Dates: start: 20150210, end: 20150708
  63. LETROZOLE [Suspect]
     Active Substance: LETROZOLE
     Indication: HER2 positive breast cancer
     Dosage: 2.50 MILLIGRAMS PER DAY (CUMULATIVE DOSE: 314.89584 MG)
     Route: 048
     Dates: start: 20150729
  64. LETROZOLE [Suspect]
     Active Substance: LETROZOLE
     Indication: Breast cancer metastatic
     Dosage: UNK
     Route: 048
     Dates: start: 20170201, end: 20170722
  65. LETROZOLE [Suspect]
     Active Substance: LETROZOLE
     Indication: Breast cancer
     Dosage: 2.5 MG, QD
     Route: 042
     Dates: start: 20150729
  66. LETROZOLE [Suspect]
     Active Substance: LETROZOLE
     Dosage: 2.5 MILLIGRAMS PER DAY  (CUMULATIVE DOSE: 314.89584 G)
     Route: 048
     Dates: start: 20150729
  67. LETROZOLE [Suspect]
     Active Substance: LETROZOLE
     Dosage: 2.5 MILLIGRAMS PER DAY (CUMULATIVE DOSE: 314.89584 G)
     Route: 048
     Dates: start: 20150729
  68. LETROZOLE [Suspect]
     Active Substance: LETROZOLE
     Dosage: UNK
     Route: 048
     Dates: start: 20170201, end: 20170722
  69. LETROZOLE [Suspect]
     Active Substance: LETROZOLE
     Dosage: UNK
     Route: 048
     Dates: start: 20170201, end: 20170722
  70. LETROZOLE [Suspect]
     Active Substance: LETROZOLE
     Dosage: 2.5 G (CUMULATIVE DOSE: 314.89584 G)
     Route: 042
     Dates: start: 20150729
  71. LETROZOLE [Suspect]
     Active Substance: LETROZOLE
     Dosage: 2.5 G (CUMULATIVE DOSE: 314.89584 G)
     Route: 048
     Dates: start: 20150729
  72. LETROZOLE [Suspect]
     Active Substance: LETROZOLE
     Dosage: 2.5 G (CUMULATIVE DOSE: 314.89584 G)
     Route: 048
     Dates: start: 20150729
  73. LETROZOLE [Suspect]
     Active Substance: LETROZOLE
     Dosage: 2.50 MILLIGRAMS PER DAY
     Route: 048
     Dates: start: 20150729
  74. LETROZOLE [Suspect]
     Active Substance: LETROZOLE
     Dosage: 2.50 MILLIGRAMS PER DAY
     Route: 048
     Dates: start: 20150729
  75. LETROZOLE [Suspect]
     Active Substance: LETROZOLE
     Dosage: 2.50 MILLIGRAMS PER DAY
     Route: 042
     Dates: start: 20150729
  76. LETROZOLE [Suspect]
     Active Substance: LETROZOLE
     Dosage: UNK
  77. LETROZOLE [Suspect]
     Active Substance: LETROZOLE
     Dosage: 2.5 MG, QD  (CUMULATIVE DOSE OF 314.89584 MG)
     Route: 042
     Dates: start: 20150729
  78. LETROZOLE [Suspect]
     Active Substance: LETROZOLE
     Dosage: UNK (STOP DATE:22 JUL 2017)
     Route: 042
     Dates: start: 20170201
  79. LETROZOLE [Suspect]
     Active Substance: LETROZOLE
     Dosage: 2.5 G, QD (CUMULATIVE DOSE: 314.89584 G)
     Route: 048
     Dates: start: 20150729
  80. LETROZOLE [Suspect]
     Active Substance: LETROZOLE
     Dosage: UNK
  81. LETROZOLE [Suspect]
     Active Substance: LETROZOLE
     Dosage: UNK
  82. PERTUZUMAB [Suspect]
     Active Substance: PERTUZUMAB
     Indication: HER2 positive breast cancer
     Dosage: 840 MG TOTAL LOADING DOSE (CUMULATIVE DOSE TO FIRST REACTION: 54564.9999 MG)
     Route: 042
     Dates: start: 20150209, end: 20150209
  83. PERTUZUMAB [Suspect]
     Active Substance: PERTUZUMAB
     Indication: Breast cancer metastatic
     Dosage: 420 MG EVERY 3 WEEKS/TIW (CUMULATIVE DOSE: 420.0 MG)
     Route: 042
     Dates: start: 20150304, end: 20170201
  84. PERTUZUMAB [Suspect]
     Active Substance: PERTUZUMAB
     Indication: Breast cancer
     Dosage: 420 MG EVERY 3 WEEKS/TIW (CUMULATIVE DOSE: 420.0 MG)
     Route: 042
     Dates: start: 20150304, end: 20170201
  85. PERTUZUMAB [Suspect]
     Active Substance: PERTUZUMAB
     Dosage: 430 EVERY 3 WEEKS MAINTENANCE DOSE
     Route: 042
  86. PERTUZUMAB [Suspect]
     Active Substance: PERTUZUMAB
     Dosage: 420 MG, EVERY 3 WEEKS/TIW (MAINTENANCE DOSE SUBSEQUENT DOSE RECEIVED ON 22/DEC/2015, 24/FEB/2016) (C
     Dates: start: 20150204
  87. PERTUZUMAB [Suspect]
     Active Substance: PERTUZUMAB
     Dosage: 420 MG, TIW (MAINTENANCE DOSE SUBSEQUENT DOSE RECEIVED ON 22/DEC/2015, 24/FEB/2016) (CUMULATIVE DOSE
     Dates: start: 20150204
  88. PERTUZUMAB [Suspect]
     Active Substance: PERTUZUMAB
     Dosage: 420 MG, TIW (MAINTENANCE DOSE SUBSEQUENT DOSE RECEIVED ON 22/DEC/2015, 24/FEB/2016) (CUMULATIVE DOSE
     Dates: start: 20150204
  89. PERTUZUMAB [Suspect]
     Active Substance: PERTUZUMAB
     Dosage: 420 MG, TIW (MAINTENANCE DOSE SUBSEQUENT DOSE RECEIVED ON 22/DEC/2015, 24/FEB/2016) (CUMULATIVE DOSE
     Dates: start: 20150204
  90. PERTUZUMAB [Suspect]
     Active Substance: PERTUZUMAB
     Dosage: 420 MG EVERY 3 WEEKS/TIW (CUMULATIVE DOSE: 420.0 MG)
     Route: 042
     Dates: start: 20150304, end: 20170201
  91. PERTUZUMAB [Suspect]
     Active Substance: PERTUZUMAB
     Dosage: 420 MG EVERY 3 WEEKS/TIW (CUMULATIVE DOSE: 420.0 MG)
     Route: 042
     Dates: start: 20150304, end: 20170201
  92. PERTUZUMAB [Suspect]
     Active Substance: PERTUZUMAB
     Dosage: 420 MG EVERY 3 WEEKS/TIW (CUMULATIVE DOSE: 420.0 MG)
     Route: 042
     Dates: start: 20150304, end: 20170201
  93. PERTUZUMAB [Suspect]
     Active Substance: PERTUZUMAB
     Dosage: 420 MG, TIW (MAINTENANCE DOSE SUBSEQUENT DOSE RECEIVED ON 22/DEC/2015, 24/FEB/2016) (CUMULATIVE DOSE
     Route: 042
     Dates: start: 20150204
  94. PERTUZUMAB [Suspect]
     Active Substance: PERTUZUMAB
     Dosage: 420 MG, TIW (MAINTENANCE DOSE SUBSEQUENT DOSE RECEIVED ON 22/DEC/2015, 24/FEB/2016) (CUMULATIVE DOSE
     Route: 042
     Dates: start: 20150204
  95. PERTUZUMAB [Suspect]
     Active Substance: PERTUZUMAB
     Dosage: 420 MG, TIW (MAINTENANCE DOSE SUBSEQUENT DOSE RECEIVED ON 22/DEC/2015, 24/FEB/2016) (CUMULATIVE DOSE
     Route: 042
     Dates: start: 20150204
  96. PERTUZUMAB [Suspect]
     Active Substance: PERTUZUMAB
     Dosage: 430 EVERY 3 WEEKS MAINTENANCE DOSE
     Route: 042
  97. PERTUZUMAB [Suspect]
     Active Substance: PERTUZUMAB
     Dosage: 430 EVERY 3 WEEKS MAINTENANCE DOSE
     Route: 042
  98. PERTUZUMAB [Suspect]
     Active Substance: PERTUZUMAB
     Dosage: 430 EVERY 3 WEEKS MAINTENANCE DOSE
     Route: 042
  99. PERTUZUMAB [Suspect]
     Active Substance: PERTUZUMAB
     Dosage: 840 MG TOTAL LOADING DOSE (CUMULATIVE DOSE TO FIRST REACTION: 54564.9999 MG)
     Route: 042
     Dates: start: 20150209, end: 20150209
  100. PERTUZUMAB [Suspect]
     Active Substance: PERTUZUMAB
     Dosage: 840 MG TOTAL LOADING DOSE (CUMULATIVE DOSE TO FIRST REACTION: 54564.9999 MG)
     Route: 042
     Dates: start: 20150209, end: 20150209
  101. PERTUZUMAB [Suspect]
     Active Substance: PERTUZUMAB
     Dosage: 840 MG TOTAL LOADING DOSE (CUMULATIVE DOSE TO FIRST REACTION: 54564.9999 MG)
     Route: 042
     Dates: start: 20150209, end: 20150209
  102. PERTUZUMAB [Suspect]
     Active Substance: PERTUZUMAB
     Dosage: 420 MG EVERY 3 WEEKS MAINTENANCE DOSE
     Route: 042
  103. PERTUZUMAB [Suspect]
     Active Substance: PERTUZUMAB
     Dosage: 840 MILLIGRAM DAILY LOADING DOSE(CUMULATIVE DOSE: 36960.0 MG)
     Route: 042
     Dates: start: 20150209, end: 20150209
  104. PERTUZUMAB [Suspect]
     Active Substance: PERTUZUMAB
     Dosage: 840 MILLIGRAM DAILY LOADING DOSE(CUMULATIVE DOSE: 36960.0 MG)
     Route: 042
     Dates: start: 20150209, end: 20150209
  105. PERTUZUMAB [Suspect]
     Active Substance: PERTUZUMAB
     Dosage: 840 MILLIGRAM DAILY LOADING DOSE(CUMULATIVE DOSE: 36960.0 MG)
     Route: 042
     Dates: start: 20150209, end: 20150209
  106. PERTUZUMAB [Suspect]
     Active Substance: PERTUZUMAB
     Dosage: 840 MILLIGRAM DAILY LOADING DOSE(CUMULATIVE DOSE: 36960.0 MG)
     Route: 042
     Dates: start: 20150209, end: 20150209
  107. PERTUZUMAB [Suspect]
     Active Substance: PERTUZUMAB
     Dosage: 840 MILLIGRAM DAILY LOADING DOSE(CUMULATIVE DOSE: 36960.0 MG)
     Route: 042
     Dates: start: 20150209, end: 20150209
  108. PERTUZUMAB [Suspect]
     Active Substance: PERTUZUMAB
     Dosage: 420 MG EVERY 3WEEKS (CUMULATIVE DOSE: 880.0 MG)
     Route: 042
     Dates: start: 20150209, end: 20170201
  109. PERTUZUMAB [Suspect]
     Active Substance: PERTUZUMAB
     Dosage: 420 MG EVERY 3 WEEKS (CUMULATIVE DOSE: 859.999999 MG)
     Route: 042
     Dates: start: 20150210
  110. PERTUZUMAB [Suspect]
     Active Substance: PERTUZUMAB
     Dosage: 420 MG EVERY 3 WEEKS (CUMULATIVE DOSE: 859.999999 MG)
     Route: 042
     Dates: start: 20150210
  111. PERTUZUMAB [Suspect]
     Active Substance: PERTUZUMAB
     Dosage: 420 MG EVERY 3 WEEKS (CUMULATIVE DOSE: 859.999999 MG)
     Route: 042
     Dates: start: 20150210
  112. PERTUZUMAB [Suspect]
     Active Substance: PERTUZUMAB
     Dosage: 420 MG EVERY 3 WEEKS (CUMULATIVE DOSE: 859.999999 MG)
     Route: 042
     Dates: start: 20150210
  113. PERTUZUMAB [Suspect]
     Active Substance: PERTUZUMAB
     Dosage: 420 MG EVERY 3 WEEKS (CUMULATIVE DOSE: 859.999999 MG)
     Route: 042
     Dates: start: 20150210
  114. PERTUZUMAB [Suspect]
     Active Substance: PERTUZUMAB
     Dosage: 420 MG TIW (MAINTENANCE DOSE SUBSEQUENT DOSE RECEIVED ON 22/DEC/2015, 24/FEB/2016)(CUMULATIVE DOSE:
     Dates: start: 20150204
  115. PERTUZUMAB [Suspect]
     Active Substance: PERTUZUMAB
     Dosage: 420 MG TIW (MAINTENANCE DOSE SUBSEQUENT DOSE RECEIVED ON 22/DEC/2015, 24/FEB/2016)(CUMULATIVE DOSE:
     Dates: start: 20150204
  116. PERTUZUMAB [Suspect]
     Active Substance: PERTUZUMAB
     Dosage: 420 MG TIW (MAINTENANCE DOSE SUBSEQUENT DOSE RECEIVED ON 22/DEC/2015, 24/FEB/2016)(CUMULATIVE DOSE:
     Dates: start: 20150204
  117. PERTUZUMAB [Suspect]
     Active Substance: PERTUZUMAB
     Dosage: 420 MG TIW (MAINTENANCE DOSE SUBSEQUENT DOSE RECEIVED ON 22/DEC/2015, 24/FEB/2016)(CUMULATIVE DOSE:
     Dates: start: 20150204
  118. PERTUZUMAB [Suspect]
     Active Substance: PERTUZUMAB
     Dosage: 420 MG TIW (MAINTENANCE DOSE SUBSEQUENT DOSE RECEIVED ON 22/DEC/2015, 24/FEB/2016)(CUMULATIVE DOSE:
     Dates: start: 20150204
  119. PERTUZUMAB [Suspect]
     Active Substance: PERTUZUMAB
     Dosage: 420 MG, EVERY 3 WEEKS (CUMULATIVE DOSE: 880.0 MG)
     Route: 042
     Dates: start: 20150209, end: 20170201
  120. PERTUZUMAB [Suspect]
     Active Substance: PERTUZUMAB
     Dosage: 420 MG, EVERY 3 WEEKS (CUMULATIVE DOSE: 880.0 MG)
     Route: 042
     Dates: start: 20150209, end: 20170201
  121. PERTUZUMAB [Suspect]
     Active Substance: PERTUZUMAB
     Dosage: 420 MG, EVERY 3 WEEKS (CUMULATIVE DOSE: 880.0 MG)
     Route: 042
     Dates: start: 20150209, end: 20170201
  122. PERTUZUMAB [Suspect]
     Active Substance: PERTUZUMAB
     Dosage: 420 MG, EVERY 3 WEEKS (CUMULATIVE DOSE: 880.0 MG)
     Route: 042
     Dates: start: 20150209, end: 20170201
  123. PERTUZUMAB [Suspect]
     Active Substance: PERTUZUMAB
     Dosage: 840 MG, QD (LOADING DOSE)
     Route: 048
     Dates: start: 20150209, end: 20150209
  124. PERTUZUMAB [Suspect]
     Active Substance: PERTUZUMAB
     Dosage: 420 MG, TIW
     Route: 048
     Dates: start: 20150304, end: 20170201
  125. PERTUZUMAB [Suspect]
     Active Substance: PERTUZUMAB
     Dosage: 840 MG, QD (LOADING DOSE) (CUMULATIVE DOSE: 880.0 MG)
     Route: 048
     Dates: start: 20150209, end: 20150209
  126. PERTUZUMAB [Suspect]
     Active Substance: PERTUZUMAB
     Dosage: 420 MG, TIW (LOADING DOSE)
     Route: 042
     Dates: start: 20150209, end: 20150209
  127. PERTUZUMAB [Suspect]
     Active Substance: PERTUZUMAB
     Dosage: 420 MG, TIW (CUMULATIVE DOSE: 880 MG)
     Route: 042
     Dates: start: 20150209, end: 20170201
  128. PERTUZUMAB [Suspect]
     Active Substance: PERTUZUMAB
     Dosage: 420 MG, TIW (CUMULATIVE DOSE: 859.999999 MG)
     Route: 042
     Dates: start: 20150210
  129. PERTUZUMAB [Suspect]
     Active Substance: PERTUZUMAB
     Dosage: 840 MG, QD (LOADING DOSE)
     Route: 042
     Dates: start: 20150209, end: 20150209
  130. PERTUZUMAB [Suspect]
     Active Substance: PERTUZUMAB
     Dosage: 420 MG, TIW (MAINTENANCE DOSE SUBSEQUENT DOSE RECEIVED ON 22/DEC/2015, 24/FEB/2016) (CUMULATIVE DOSE
     Route: 042
     Dates: start: 20150204
  131. PERTUZUMAB [Suspect]
     Active Substance: PERTUZUMAB
     Dosage: 430 MG, TIW (MAINTENANCE DOSE)
     Route: 042
  132. ADO-TRASTUZUMAB EMTANSINE [Suspect]
     Active Substance: ADO-TRASTUZUMAB EMTANSINE
     Indication: Breast cancer metastatic
     Dosage: 504 MG, QD
     Route: 042
  133. ADO-TRASTUZUMAB EMTANSINE [Suspect]
     Active Substance: ADO-TRASTUZUMAB EMTANSINE
     Indication: HER2 positive breast cancer
     Dosage: UNK
     Route: 042
  134. ADO-TRASTUZUMAB EMTANSINE [Suspect]
     Active Substance: ADO-TRASTUZUMAB EMTANSINE
     Indication: Breast cancer metastatic
     Dosage: 240 MG EVERY 3 WEEKS (CUMULATIVE DOSE: 7760.0 MG)
     Route: 042
     Dates: start: 20170201, end: 20170722
  135. ADO-TRASTUZUMAB EMTANSINE [Suspect]
     Active Substance: ADO-TRASTUZUMAB EMTANSINE
     Indication: Breast cancer
     Dosage: 240 MG EVERY 3 WEEKS (CUMULATIVE DOSE: 7760.0 MG)
     Route: 042
     Dates: start: 20170201, end: 20170722
  136. ADO-TRASTUZUMAB EMTANSINE [Suspect]
     Active Substance: ADO-TRASTUZUMAB EMTANSINE
     Dosage: 230 MILLIGRAM EVERY 3 WEEKS (CUMULATIVE DOSE: 9582.877 MG)
     Route: 042
     Dates: start: 20170816
  137. ADO-TRASTUZUMAB EMTANSINE [Suspect]
     Active Substance: ADO-TRASTUZUMAB EMTANSINE
     Dosage: 230 MILLIGRAM EVERY 3 WEEKS (CUMULATIVE DOSE: 9582.877 MG)
     Route: 042
     Dates: start: 20170816
  138. ADO-TRASTUZUMAB EMTANSINE [Suspect]
     Active Substance: ADO-TRASTUZUMAB EMTANSINE
     Dosage: UNK
  139. ADO-TRASTUZUMAB EMTANSINE [Suspect]
     Active Substance: ADO-TRASTUZUMAB EMTANSINE
     Dosage: UNK
  140. ADO-TRASTUZUMAB EMTANSINE [Suspect]
     Active Substance: ADO-TRASTUZUMAB EMTANSINE
     Dosage: 240 MG, TIW (CUMULATIVE DOSE: 7760.0 MG)
     Route: 042
     Dates: start: 20170201, end: 20170722
  141. ADO-TRASTUZUMAB EMTANSINE [Suspect]
     Active Substance: ADO-TRASTUZUMAB EMTANSINE
     Dosage: 504 MG, QD (LOADING DOSE)
     Route: 042
  142. ADO-TRASTUZUMAB EMTANSINE [Suspect]
     Active Substance: ADO-TRASTUZUMAB EMTANSINE
     Dosage: 230 MG, TIW (CUMULATIVE DOSE: 9582.877 MG)
     Route: 042
     Dates: start: 20170816
  143. CALCIUM CARBONATE\CHOLECALCIFEROL [Concomitant]
     Active Substance: CALCIUM CARBONATE\CHOLECALCIFEROL
     Indication: Product used for unknown indication
     Dosage: 1.5 G, BID (PROPHALATIC TREATMENT WITH LETROZOLE)
     Route: 048
     Dates: start: 20150629, end: 20151202
  144. CALCIUM CARBONATE\CHOLECALCIFEROL [Concomitant]
     Active Substance: CALCIUM CARBONATE\CHOLECALCIFEROL
     Dosage: .5 G, BID (PROPHALATIC TREATMENT WITH LETROZOLE) (UNCOATED, ORAL)
     Route: 048
     Dates: start: 20150729, end: 20151202
  145. CALCIUM CARBONATE\CHOLECALCIFEROL [Concomitant]
     Active Substance: CALCIUM CARBONATE\CHOLECALCIFEROL
     Dosage: 1.5 G  (UNCOATED, ORAL)
     Dates: start: 20150729, end: 20151202
  146. CALCIUM CARBONATE\CHOLECALCIFEROL [Concomitant]
     Active Substance: CALCIUM CARBONATE\CHOLECALCIFEROL
     Dosage: 4.5 G  (UNCOATED, ORAL) (CUMULATIVE DOSE TO FIRST REACTION: 1044.1875 G)
     Route: 048
     Dates: start: 20151203, end: 20190813
  147. CALCIUM CARBONATE\CHOLECALCIFEROL [Concomitant]
     Active Substance: CALCIUM CARBONATE\CHOLECALCIFEROL
     Dosage: 1.5 G (0.5 PER DAY)
     Dates: start: 20150729, end: 20151202
  148. CALCIUM CARBONATE\CHOLECALCIFEROL [Concomitant]
     Active Substance: CALCIUM CARBONATE\CHOLECALCIFEROL
     Dosage: 1.5 G
     Dates: start: 20151203, end: 20190813
  149. CALCIUM CARBONATE\CHOLECALCIFEROL [Concomitant]
     Active Substance: CALCIUM CARBONATE\CHOLECALCIFEROL
     Dosage: 1.5 (0.33 PER DAY)
     Dates: start: 20151203, end: 20190813
  150. CALCIUM CARBONATE\CHOLECALCIFEROL [Concomitant]
     Active Substance: CALCIUM CARBONATE\CHOLECALCIFEROL
     Dosage: 3G, QD (UNCOATED, ORAL) (CUMULATIVE DOSE TO FIRST REACTION: 315.0 G)
     Route: 048
     Dates: start: 20150729, end: 20151202
  151. CALCIUM CARBONATE\CHOLECALCIFEROL [Concomitant]
     Active Substance: CALCIUM CARBONATE\CHOLECALCIFEROL
     Dosage: 3G, QD (UNCOATED, ORAL) (CUMULATIVE DOSE TO FIRST REACTION: 377.875 G)
     Route: 048
     Dates: start: 20150729, end: 20151202
  152. CALCIUM CARBONATE\CHOLECALCIFEROL [Concomitant]
     Active Substance: CALCIUM CARBONATE\CHOLECALCIFEROL
     Dosage: 4.5 MG DAILY (UNCOATED, ORAL) (CUMULATIVE DOSE: 1138.5 G)
     Route: 048
     Dates: start: 20151203, end: 20190813
  153. CALCIUM CARBONATE\CHOLECALCIFEROL [Concomitant]
     Active Substance: CALCIUM CARBONATE\CHOLECALCIFEROL
     Dosage: 1.5 G, TID (0.33 DAY)
     Route: 048
     Dates: start: 20151203, end: 20190813
  154. CALCIUM CARBONATE\CHOLECALCIFEROL [Concomitant]
     Active Substance: CALCIUM CARBONATE\CHOLECALCIFEROL
     Dosage: 1.5 G, BID
     Dates: start: 20150729, end: 20151202
  155. CALCIUM CARBONATE\CHOLECALCIFEROL [Concomitant]
     Active Substance: CALCIUM CARBONATE\CHOLECALCIFEROL
     Dosage: 1.5 G, TID (0.33 DAY)
     Route: 048
     Dates: start: 20151203, end: 20190813
  156. CALCIUM CARBONATE\CHOLECALCIFEROL [Concomitant]
     Active Substance: CALCIUM CARBONATE\CHOLECALCIFEROL
     Dosage: 1.5 G, BID
     Dates: start: 20150729, end: 20151202
  157. CALCIUM CARBONATE\CHOLECALCIFEROL [Concomitant]
     Active Substance: CALCIUM CARBONATE\CHOLECALCIFEROL
     Dosage: 1.5 G
     Dates: start: 20150729, end: 20151202
  158. CALCIUM CARBONATE\CHOLECALCIFEROL [Concomitant]
     Active Substance: CALCIUM CARBONATE\CHOLECALCIFEROL
     Dosage: 1.5 G, TID (0.33 DAY)
     Route: 048
     Dates: start: 20151203, end: 20190813
  159. CALCIUM CARBONATE\CHOLECALCIFEROL [Concomitant]
     Active Substance: CALCIUM CARBONATE\CHOLECALCIFEROL
     Dosage: 1.5 G
     Dates: start: 20150729, end: 20151202
  160. CALCIUM CARBONATE\CHOLECALCIFEROL [Concomitant]
     Active Substance: CALCIUM CARBONATE\CHOLECALCIFEROL
     Dosage: 1.5 G
     Dates: start: 20151203, end: 20190813
  161. CALCIUM CARBONATE\CHOLECALCIFEROL [Concomitant]
     Active Substance: CALCIUM CARBONATE\CHOLECALCIFEROL
     Dosage: 1.5 G, BID
     Dates: start: 20150729, end: 20151202
  162. AMOXICILLIN [Concomitant]
     Active Substance: AMOXICILLIN
     Indication: Product used for unknown indication
     Dosage: 1500 MG, QD(UNCOATED, ORAL)(CUMULATIVE DOSE TO FIRST REACTION: 735000.0 MG)
     Route: 048
     Dates: start: 20160817, end: 20160821
  163. AMOXICILLIN [Concomitant]
     Active Substance: AMOXICILLIN
     Dosage: 500 MG, QD (UNCOATED, ORAL)
     Route: 048
     Dates: start: 20170821, end: 20170826
  164. AMOXICILLIN [Concomitant]
     Active Substance: AMOXICILLIN
     Dosage: 500 MG, TID (0.33 DAY)
     Route: 048
     Dates: start: 20161016
  165. AMOXICILLIN [Concomitant]
     Active Substance: AMOXICILLIN
     Dosage: 500 MG, (0.33 DAY)
     Dates: start: 20160817, end: 20160821
  166. AMOXICILLIN [Concomitant]
     Active Substance: AMOXICILLIN
     Dosage: 500 MG, (0.33 DAY)
     Dates: start: 20170821, end: 20170826
  167. AMOXICILLIN [Concomitant]
     Active Substance: AMOXICILLIN
     Dosage: 1500 MG, QD (UNCOATED, ORAL)  (CUMULATIVE DOSE TO FIRST REACTION: 1288500.0 MG)
     Route: 048
     Dates: start: 20160821, end: 20160826
  168. AMOXICILLIN [Concomitant]
     Active Substance: AMOXICILLIN
     Dosage: 1500 MG QD (UNCOATED, ORAL)(CUMULATIVE DOSE TO FIRST REACTION: 825000.0 MG)
     Route: 048
     Dates: start: 20161016
  169. AMOXICILLIN [Concomitant]
     Active Substance: AMOXICILLIN
     Dosage: 1500 MG, QD(UNCOATED, ORAL)(CUMULATIVE DOSE TO FIRST REACTION: 766437.5 MG)
     Route: 048
     Dates: start: 20160817, end: 20160821
  170. AMOXICILLIN [Concomitant]
     Active Substance: AMOXICILLIN
     Dosage: 1500 MG, QD (UNCOATED, ORAL) CUMULATIVE DOSE: 1319937.5 MG)
     Route: 048
     Dates: start: 20170821, end: 20170826
  171. AMOXICILLIN [Concomitant]
     Active Substance: AMOXICILLIN
     Dosage: 1500 MG (UNCOATED, ORAL) (CUMULATIVE DOSE: 856437.5 MG)
     Route: 048
     Dates: start: 20161016, end: 20161023
  172. AMOXICILLIN [Concomitant]
     Active Substance: AMOXICILLIN
     Dosage: 500 MG, TID (0.33 DAY)
     Route: 048
     Dates: start: 20160817, end: 20160821
  173. AMOXICILLIN [Concomitant]
     Active Substance: AMOXICILLIN
     Dosage: 500 MG (SUBSEQUENT DOSE RECEIVED ON 21/AUG/2017)
     Route: 048
     Dates: start: 20161016, end: 20161023
  174. AMOXICILLIN [Concomitant]
     Active Substance: AMOXICILLIN
     Dosage: 500 MG, TID (0.33 DAY)
     Route: 048
     Dates: start: 20161015, end: 20161023
  175. AMOXICILLIN [Concomitant]
     Active Substance: AMOXICILLIN
     Dosage: 500 MG, TID (0.33 DAY)
     Route: 048
     Dates: start: 20170821, end: 20170826
  176. AMOXICILLIN [Concomitant]
     Active Substance: AMOXICILLIN
     Dosage: 500 MG, TID (0.33 DAY)
     Route: 048
     Dates: start: 20160816
  177. AMOXICILLIN [Concomitant]
     Active Substance: AMOXICILLIN
     Dosage: 1500 MG, QD(UNCOATED, ORAL)(CUMULATIVE DOSE TO FIRST REACTION: 766437.5 MG)
     Route: 048
     Dates: start: 20160817, end: 20160821
  178. AMOXICILLIN [Concomitant]
     Active Substance: AMOXICILLIN
     Dosage: 1500 MG (UNCOATED, ORAL) (CUMULATIVE DOSE: 856437.5 MG)
     Route: 048
     Dates: start: 20161016
  179. AMOXICILLIN [Concomitant]
     Active Substance: AMOXICILLIN
     Dosage: 500 MG, TID (0.33 DAY)
     Route: 048
     Dates: start: 20170821, end: 20170826
  180. AMOXICILLIN [Concomitant]
     Active Substance: AMOXICILLIN
     Dosage: 500 MG
     Dates: start: 20161015, end: 20161023
  181. AMOXICILLIN [Concomitant]
     Active Substance: AMOXICILLIN
     Dosage: 500 MG, (0.33 DAY)
     Dates: start: 20170821, end: 20170826
  182. AMOXICILLIN [Concomitant]
     Active Substance: AMOXICILLIN
     Dosage: 500 MG
     Dates: start: 20170821, end: 20170826
  183. AMOXICILLIN [Concomitant]
     Active Substance: AMOXICILLIN
     Dosage: 500 MG
     Dates: start: 20160817, end: 20160821
  184. AMOXICILLIN [Concomitant]
     Active Substance: AMOXICILLIN
     Dosage: 1500 MG, TID (0.33 DAY)
     Route: 048
     Dates: start: 20160816
  185. CHLORHEXIDINE GLUCONATE [Concomitant]
     Active Substance: CHLORHEXIDINE GLUCONATE
     Indication: Product used for unknown indication
     Dosage: 10 ML
     Dates: start: 20171001, end: 20171008
  186. CHLORHEXIDINE GLUCONATE [Concomitant]
     Active Substance: CHLORHEXIDINE GLUCONATE
     Dosage: UNK
  187. AMOXICILLIN\CLAVULANATE POTASSIUM [Concomitant]
     Active Substance: AMOXICILLIN\CLAVULANATE POTASSIUM
     Indication: Product used for unknown indication
     Dosage: 1500 MG, QD
     Route: 048
     Dates: start: 20171001, end: 20171008
  188. AMOXICILLIN\CLAVULANATE POTASSIUM [Concomitant]
     Active Substance: AMOXICILLIN\CLAVULANATE POTASSIUM
     Dosage: 500 MG
     Route: 048
     Dates: start: 20190530, end: 20190606
  189. AMOXICILLIN\CLAVULANATE POTASSIUM [Concomitant]
     Active Substance: AMOXICILLIN\CLAVULANATE POTASSIUM
     Dosage: 800 MG, QD, 400 MG, BID (CUMULATIVE DOSE: 760000.0 MG)
     Route: 048
     Dates: start: 20171030, end: 20171105
  190. AMOXICILLIN\CLAVULANATE POTASSIUM [Concomitant]
     Active Substance: AMOXICILLIN\CLAVULANATE POTASSIUM
     Dosage: 500 MG, QD
     Route: 048
     Dates: start: 20170926
  191. AMOXICILLIN\CLAVULANATE POTASSIUM [Concomitant]
     Active Substance: AMOXICILLIN\CLAVULANATE POTASSIUM
     Dosage: 1500 MG, QD SUBSEQUENT DOSE RECEIVED ON 30?MAY/2019/TID CUMULATIVE DOSE TO FIRST REACTION: 1705500.0
     Route: 048
     Dates: start: 20180526, end: 20180601
  192. AMOXICILLIN\CLAVULANATE POTASSIUM [Concomitant]
     Active Substance: AMOXICILLIN\CLAVULANATE POTASSIUM
     Dosage: 1500 MG, QD
     Route: 048
     Dates: start: 20190530, end: 20190606
  193. AMOXICILLIN\CLAVULANATE POTASSIUM [Concomitant]
     Active Substance: AMOXICILLIN\CLAVULANATE POTASSIUM
     Dosage: 500 MG
     Route: 048
     Dates: start: 20171001, end: 20171008
  194. AMOXICILLIN\CLAVULANATE POTASSIUM [Concomitant]
     Active Substance: AMOXICILLIN\CLAVULANATE POTASSIUM
     Dosage: 500 MG, TID (CUMULATIVE DOSE: 1736937.5 MG)
     Route: 048
     Dates: start: 20180526, end: 20180601
  195. AMOXICILLIN\CLAVULANATE POTASSIUM [Concomitant]
     Active Substance: AMOXICILLIN\CLAVULANATE POTASSIUM
     Dosage: 400 MG, BID (0.5 DAY)
     Dates: start: 20171030, end: 20171105
  196. AMOXICILLIN\CLAVULANATE POTASSIUM [Concomitant]
     Active Substance: AMOXICILLIN\CLAVULANATE POTASSIUM
     Dosage: 1500 MG, QD SUBSEQUENT DOSE RECEIVED ON 30?MAY/2019/TID CUMULATIVE DOSE TO FIRST REACTION: 1705500.0
     Route: 048
     Dates: start: 20180526, end: 20180601
  197. AMOXICILLIN\CLAVULANATE POTASSIUM [Concomitant]
     Active Substance: AMOXICILLIN\CLAVULANATE POTASSIUM
     Dosage: 800 MG, QD, 400 MG, BID (CUMULATIVE DOSE: 760000.0 MG)
     Dates: start: 20171030, end: 20171105
  198. AMOXICILLIN\CLAVULANATE POTASSIUM [Concomitant]
     Active Substance: AMOXICILLIN\CLAVULANATE POTASSIUM
     Dosage: 1500 MG, QD SUBSEQUENT DOSE RECEIVED ON 30?MAY/2019/TID CUMULATIVE DOSE TO FIRST REACTION: 1705500.0
     Route: 048
     Dates: start: 20180526, end: 20180601
  199. MICONAZOLE NITRATE [Concomitant]
     Active Substance: MICONAZOLE NITRATE
     Indication: Rash
     Dosage: 40 MG, QD (CUMULATIVE DOSE: 24600.0 MG)
     Route: 061
     Dates: start: 20161129, end: 20170101
  200. MICONAZOLE NITRATE [Concomitant]
     Active Substance: MICONAZOLE NITRATE
     Dosage: 40 MG, QD (CUMULATIVE DOSE TO FIRST REACTION: 23761.666 MG)
     Route: 061
     Dates: start: 20161129, end: 20170101
  201. MICONAZOLE NITRATE [Concomitant]
     Active Substance: MICONAZOLE NITRATE
     Dosage: 20 MILLIGRAM (0.5 DAY)
     Dates: start: 20161129, end: 20170101
  202. MICONAZOLE NITRATE [Concomitant]
     Active Substance: MICONAZOLE NITRATE
     Dosage: 20 MILLIGRAM (0.5 DAY)
     Route: 061
     Dates: start: 20161129, end: 20170101
  203. MICONAZOLE NITRATE [Concomitant]
     Active Substance: MICONAZOLE NITRATE
     Dosage: UNK
  204. DEXAMETHASONE [Concomitant]
     Active Substance: DEXAMETHASONE
     Indication: Product used for unknown indication
     Dosage: 4 MG, QD(UNCOATED, ORAL)
     Route: 048
     Dates: start: 20170531, end: 20170602
  205. DEXAMETHASONE [Concomitant]
     Active Substance: DEXAMETHASONE
     Dosage: 8 MG (UNCOATED, ORAL)
     Route: 048
     Dates: start: 20150524, end: 20150708
  206. DEXAMETHASONE [Concomitant]
     Active Substance: DEXAMETHASONE
     Dosage: 16 MG, QD
     Route: 048
     Dates: start: 20150527, end: 20150708
  207. DEXAMETHASONE [Concomitant]
     Active Substance: DEXAMETHASONE
     Dosage: 2 MG, QD
     Route: 048
     Dates: start: 20170616, end: 20170616
  208. DEXAMETHASONE [Concomitant]
     Active Substance: DEXAMETHASONE
     Dosage: 8 MG, QD
     Route: 048
     Dates: start: 20170616, end: 20220617
  209. DEXAMETHASONE [Concomitant]
     Active Substance: DEXAMETHASONE
     Dosage: 4 MG (UNCOATED, ORAL)
     Route: 048
     Dates: start: 20170618, end: 20170619
  210. DEXAMETHASONE [Concomitant]
     Active Substance: DEXAMETHASONE
     Dosage: 4 MG, QD (UNCOATED, ORAL) (CUMULATIVE DOSE: 3271.8333 MG)
     Route: 048
     Dates: start: 20170620, end: 20170621
  211. DEXAMETHASONE [Concomitant]
     Active Substance: DEXAMETHASONE
     Dosage: 2 MG (UNCOATED, ORAL)
     Route: 048
     Dates: start: 20170620, end: 20170621
  212. DEXAMETHASONE [Concomitant]
     Active Substance: DEXAMETHASONE
     Dosage: 16 MG, QD (CUMULATIVE DOSE TO FIRST REACTION: 12688.0 MG )
     Route: 048
     Dates: start: 20170616, end: 20170617
  213. DEXAMETHASONE [Concomitant]
     Active Substance: DEXAMETHASONE
     Dosage: 2 MG (0. 5 PER DAY)
     Dates: start: 20170620, end: 20170621
  214. DEXAMETHASONE [Concomitant]
     Active Substance: DEXAMETHASONE
     Dosage: 8 MG (0.5 PER DAY)
     Dates: start: 20170616, end: 20170617
  215. DEXAMETHASONE [Concomitant]
     Active Substance: DEXAMETHASONE
     Dosage: 4 MG (0.5 PER DAY)
     Dates: start: 20170616, end: 20170619
  216. DEXAMETHASONE [Concomitant]
     Active Substance: DEXAMETHASONE
     Dosage: 2 MG, DAILY (UNCOATED, ORAL) (CUMULATIVE DOSE TO FIRST REACTION: 1560.0 MG )
     Route: 048
     Dates: start: 20170603, end: 20170604
  217. DEXAMETHASONE [Concomitant]
     Active Substance: DEXAMETHASONE
     Dosage: 8 MG (0.5 PER DAY)
     Dates: start: 20150524, end: 20150708
  218. DEXAMETHASONE [Concomitant]
     Active Substance: DEXAMETHASONE
     Dosage: 16 MG, QD (UNCOATED, ORAL)(CUMULATIVE DOSE TO FIRST REACTION: 624.0 MG)
     Route: 048
     Dates: start: 20150524, end: 20150708
  219. DEXAMETHASONE [Concomitant]
     Active Substance: DEXAMETHASONE
     Dosage: 4 MG QD(UNCOATED, ORAL) (CUMULATIVE DOSE TO FIRST REACTION: 3188.0 MG)
     Route: 048
     Dates: start: 20170620, end: 20170621
  220. DEXAMETHASONE [Concomitant]
     Active Substance: DEXAMETHASONE
     Dosage: 8 MG QD(UNCOATED, ORAL)(CUMULATIVE DOSE TO FIRST REACTION: 6344.0 MG)
     Route: 048
     Dates: start: 20170616, end: 20170619
  221. DEXAMETHASONE [Concomitant]
     Active Substance: DEXAMETHASONE
     Dosage: 4 MG, QD(UNCOATED, ORAL) (CUMULATIVE DOSE TO FIRST REACTION: 3108.0 MG)
     Route: 048
     Dates: start: 20170531, end: 20170602
  222. DEXAMETHASONE [Concomitant]
     Active Substance: DEXAMETHASONE
     Dosage: 4 MG, QD (CUMULATIVE DOSE: 3191.8333 MG)
     Route: 048
     Dates: start: 20170531, end: 20170602
  223. DEXAMETHASONE [Concomitant]
     Active Substance: DEXAMETHASONE
     Dosage: 2 MG, QD  (UNCOATED, ORAL)  (CUMULATIVE DOSE: 1601.9166 MG)
     Route: 048
     Dates: start: 20170603, end: 20170604
  224. DEXAMETHASONE [Concomitant]
     Active Substance: DEXAMETHASONE
     Dosage: 16 MG, QD (UNCOATED, ORAL) (CUMULATIVE DOSE: 13023.333 MG)
     Route: 048
     Dates: start: 20170616, end: 20170617
  225. DEXAMETHASONE [Concomitant]
     Active Substance: DEXAMETHASONE
     Dosage: 16 MG, QD (UNCOATED, ORAL) (CUMULATIVE DOSE: 959.3333 MG)
     Route: 048
     Dates: start: 20150524, end: 20150708
  226. DEXAMETHASONE [Concomitant]
     Active Substance: DEXAMETHASONE
     Dosage: 8 MG, QD (UNCOATED, ORAL) (CUMULATIVE DOSE: 6511.6665 MG)
     Route: 048
     Dates: start: 20170616, end: 20170619
  227. DEXAMETHASONE [Concomitant]
     Active Substance: DEXAMETHASONE
     Dosage: 4 MG (CUMULATIVE DOSE: 736 MG)
     Dates: start: 20170618, end: 20170619
  228. DEXAMETHASONE [Concomitant]
     Active Substance: DEXAMETHASONE
     Dosage: 8 MG, BID (0.5 DAY) (CUMULATIVE DOSE: 736 MG)
     Route: 048
     Dates: start: 20150527, end: 20150707
  229. DEXAMETHASONE [Concomitant]
     Active Substance: DEXAMETHASONE
     Dosage: UNK (SUBSEQUENT DOSE RECEIVED ON 18/JUN/2017)
     Dates: start: 20170531, end: 20170602
  230. DEXAMETHASONE [Concomitant]
     Active Substance: DEXAMETHASONE
     Dosage: 2 MG, QD (SUBSEQUENT DOSE RECEIVED ON 20/JUN/2017.) (CUMULATIVE DOSE: 736 MG)
     Dates: start: 20170616, end: 20170616
  231. DEXAMETHASONE [Concomitant]
     Active Substance: DEXAMETHASONE
     Dosage: 2 MG, QD (CUMULATIVE DOSE: 736 MG)
     Route: 048
     Dates: start: 20170603, end: 20170604
  232. DEXAMETHASONE [Concomitant]
     Active Substance: DEXAMETHASONE
     Dosage: 8 MG QD (CUMULATIVE DOSE: 736 MG)
     Route: 048
     Dates: start: 20170616, end: 20170617
  233. DEXAMETHASONE [Concomitant]
     Active Substance: DEXAMETHASONE
     Dosage: 2 MG, BID (0.5 DAY) (CUMULATIVE DOSE: 736 MG)
     Route: 048
     Dates: start: 20170620, end: 20170621
  234. DEXAMETHASONE [Concomitant]
     Active Substance: DEXAMETHASONE
     Dosage: 8 MG, QD (CUMULATIVE DOSE: 736 MG)
     Route: 048
  235. DEXAMETHASONE [Concomitant]
     Active Substance: DEXAMETHASONE
     Dosage: 4 MG (CUMULATIVE DOSE: 736 MG)
     Dates: start: 20170616, end: 20170619
  236. DEXAMETHASONE [Concomitant]
     Active Substance: DEXAMETHASONE
     Dosage: 2 MG (CUMULATIVE DOSE: 736 MG)
     Route: 048
     Dates: start: 20170620, end: 20170621
  237. DEXAMETHASONE [Concomitant]
     Active Substance: DEXAMETHASONE
     Dosage: 4 MG, BID (0.5 DAY) (CUMULATIVE DOSE: 736 MG)
     Route: 048
     Dates: start: 20170616, end: 20170617
  238. DEXAMETHASONE [Concomitant]
     Active Substance: DEXAMETHASONE
     Dosage: 8 MG (CUMULATIVE DOSE: 736 MG)
     Route: 048
     Dates: start: 20150524, end: 20150708
  239. DEXAMETHASONE [Concomitant]
     Active Substance: DEXAMETHASONE
     Dosage: 4 MG, QD (CUMULATIVE DOSE: 736 MG)
     Route: 048
     Dates: start: 20170531, end: 20170602
  240. DEXAMETHASONE [Concomitant]
     Active Substance: DEXAMETHASONE
     Dosage: 8 MG (0.5 PER DAY)
     Dates: start: 20170616, end: 20170617
  241. DEXAMETHASONE [Concomitant]
     Active Substance: DEXAMETHASONE
     Dosage: 4 MG QD(UNCOATED, ORAL) (CUMULATIVE DOSE TO FIRST REACTION: 3188.0 MG)
     Route: 048
     Dates: start: 20170620, end: 20170621
  242. DEXAMETHASONE [Concomitant]
     Active Substance: DEXAMETHASONE
     Dosage: 2 MG
     Route: 048
     Dates: start: 20170620, end: 20170621
  243. DEXAMETHASONE [Concomitant]
     Active Substance: DEXAMETHASONE
     Dosage: 8 MG (0.5 PER DAY)
     Route: 048
     Dates: start: 20170616, end: 20170617
  244. DEXAMETHASONE [Concomitant]
     Active Substance: DEXAMETHASONE
     Dosage: 8 MG
     Dates: start: 20150527, end: 20150708
  245. DEXAMETHASONE [Concomitant]
     Active Substance: DEXAMETHASONE
     Dosage: 8 MG, BID (0.5 DAY)
     Route: 048
     Dates: start: 20170616, end: 20170617
  246. DEXAMETHASONE [Concomitant]
     Active Substance: DEXAMETHASONE
     Dosage: 16 MG, QD
     Route: 048
     Dates: start: 20150527, end: 20150708
  247. BENZYDAMINE HYDROCHLORIDE [Concomitant]
     Active Substance: BENZYDAMINE HYDROCHLORIDE
     Indication: Product used for unknown indication
     Dosage: 10 ML MOUTHWASH, FREQUENCY- PRN(AS NEEDDED)
     Dates: start: 20150307, end: 20150311
  248. BENZYDAMINE HYDROCHLORIDE [Concomitant]
     Active Substance: BENZYDAMINE HYDROCHLORIDE
     Dosage: 10 ML, MOUTHWASH,
     Dates: start: 20150307, end: 20150311
  249. DOXYCYCLINE [Concomitant]
     Active Substance: DOXYCYCLINE
     Indication: Dermatitis acneiform
     Dosage: 200MGS DAY ONE, 100MGS OD FOR 6 DAYS (UNCOATED, ORAL)
     Route: 048
     Dates: start: 20150427, end: 20150608
  250. DOXYCYCLINE [Concomitant]
     Active Substance: DOXYCYCLINE
     Dosage: 100 MG, QD (CUMULATIVE DOSE: 3295.8333 MG)
     Route: 048
     Dates: start: 20150427, end: 20150608
  251. DOXYCYCLINE [Concomitant]
     Active Substance: DOXYCYCLINE
     Dosage: 100 MG (CUMULATIVE DOSE: 3295.8333 MG)
     Route: 048
     Dates: start: 20150427, end: 20150608
  252. DOXYCYCLINE [Concomitant]
     Active Substance: DOXYCYCLINE
     Dosage: 100 MG (CUMULATIVE DOSE: 3295.8333 MG)
     Route: 048
     Dates: start: 20150427, end: 20150608
  253. DOXYCYCLINE [Concomitant]
     Active Substance: DOXYCYCLINE
     Dosage: 100 MG (CUMULATIVE DOSE: 3295.8333 MG)
     Route: 048
     Dates: start: 20150427, end: 20150608
  254. DOXYCYCLINE [Concomitant]
     Active Substance: DOXYCYCLINE
     Dosage: 100 MG, QD (UNCOATED, ORAL) CUMULATIVE DOSE TO FIRST REACTION: 91100.0 MG
     Dates: start: 20171012, end: 20171029
  255. DOXYCYCLINE [Concomitant]
     Active Substance: DOXYCYCLINE
     Dosage: 100 MG, QD CUMULATIVE DOSE TO FIRST REACTION: 91100.0 MG
     Dates: start: 20171012, end: 20171029
  256. DOXYCYCLINE [Concomitant]
     Active Substance: DOXYCYCLINE
     Dosage: 100 MG, QD CUMULATIVE DOSE TO FIRST REACTION: 91100.0 MG
     Dates: start: 20171012, end: 20171029
  257. DOXYCYCLINE [Concomitant]
     Active Substance: DOXYCYCLINE
     Dosage: 100 MG, QD CUMULATIVE DOSE TO FIRST REACTION: 93195.836 MG
     Dates: start: 20171012, end: 20171029
  258. DOXYCYCLINE [Concomitant]
     Active Substance: DOXYCYCLINE
     Dosage: 100 MG, QD CUMULATIVE DOSE TO FIRST REACTION: 91100.0 MG
     Dates: start: 20171012, end: 20171029
  259. DOXYCYCLINE [Concomitant]
     Active Substance: DOXYCYCLINE
     Dosage: 100 MG, QD (UNCOATED, ORAL) (CUMULATIVE DOSE: 95700.0 MG)
     Dates: start: 20171106, end: 20191019
  260. DOXYCYCLINE [Concomitant]
     Active Substance: DOXYCYCLINE
     Dosage: 100 MG, QD (CUMULATIVE DOSE: 95700.0 MG)
     Dates: start: 20171106, end: 20191019
  261. DOXYCYCLINE [Concomitant]
     Active Substance: DOXYCYCLINE
     Dosage: 100 MG, QD (CUMULATIVE DOSE: 95700.0 MG)
     Dates: start: 20171106, end: 20191019
  262. DOXYCYCLINE [Concomitant]
     Active Substance: DOXYCYCLINE
     Dosage: 100 MG, QD (CUMULATIVE DOSE: 95700.0 MG)
     Dates: start: 20171106, end: 20191019
  263. DOXYCYCLINE [Concomitant]
     Active Substance: DOXYCYCLINE
     Dosage: 100 MG, QD (CUMULATIVE DOSE: 95700.0 MG)
     Dates: start: 20171106, end: 20191019
  264. DOXYCYCLINE [Concomitant]
     Active Substance: DOXYCYCLINE
     Dosage: 100 MG, QD (CUMULATIVE DOSE: 95700.0 MG)
     Dates: start: 20171106, end: 20191019
  265. DOXYCYCLINE [Concomitant]
     Active Substance: DOXYCYCLINE
     Dosage: 100 MG, QD (CUMULATIVE DOSE: 95700.0 MG)
     Dates: start: 20171106, end: 20191019
  266. DOXYCYCLINE [Concomitant]
     Active Substance: DOXYCYCLINE
     Dosage: 100 MG, QD (CUMULATIVE DOSE: 95700.0 MG)
     Dates: start: 20171106, end: 20191019
  267. DOXYCYCLINE [Concomitant]
     Active Substance: DOXYCYCLINE
     Dosage: 100 MG, QD (CUMULATIVE DOSE: 95700.0 MG)
     Dates: start: 20171106, end: 20191019
  268. DOXYCYCLINE [Concomitant]
     Active Substance: DOXYCYCLINE
     Dosage: 100 MG, QD (CUMULATIVE DOSE: 95700.0 MG)
     Dates: start: 20171106, end: 20191019
  269. DOXYCYCLINE [Concomitant]
     Active Substance: DOXYCYCLINE
     Dosage: 300 MG, QD (UNCOATED, ORAL)
     Route: 048
     Dates: start: 20190607
  270. DOXYCYCLINE [Concomitant]
     Active Substance: DOXYCYCLINE
     Dosage: 100 MG, QD (UNCOATED, ORAL)CUMULATIVE DOSE TO FIRST REACTION: 151400.0 MG
     Route: 048
     Dates: start: 20190607
  271. DOXYCYCLINE [Concomitant]
     Active Substance: DOXYCYCLINE
     Dosage: 100 MG, QD CUMULATIVE DOSE TO FIRST REACTION: 151400.0 MG
     Route: 048
     Dates: start: 20190607
  272. DOXYCYCLINE [Concomitant]
     Active Substance: DOXYCYCLINE
     Dosage: 100 MG, QD CUMULATIVE DOSE TO FIRST REACTION: 151400.0 MG
     Route: 048
     Dates: start: 20190607
  273. DOXYCYCLINE [Concomitant]
     Active Substance: DOXYCYCLINE
     Dosage: 100 MG, QD CUMULATIVE DOSE TO FIRST REACTION: 151400.0 MG
     Route: 048
     Dates: start: 20190607
  274. DOXYCYCLINE [Concomitant]
     Active Substance: DOXYCYCLINE
     Dosage: 100 MG, QD CUMULATIVE DOSE TO FIRST REACTION: 151400.0 MG
     Route: 048
     Dates: start: 20190607
  275. DOXYCYCLINE [Concomitant]
     Active Substance: DOXYCYCLINE
     Dosage: 100 MG, QD CUMULATIVE DOSE TO FIRST REACTION: 151400.0 MG
     Route: 048
     Dates: start: 20190607
  276. DOXYCYCLINE [Concomitant]
     Active Substance: DOXYCYCLINE
     Dosage: 100 MG, QD CUMULATIVE DOSE TO FIRST REACTION: 151400.0 MG
     Route: 048
     Dates: start: 20190607
  277. DOXYCYCLINE [Concomitant]
     Active Substance: DOXYCYCLINE
     Dosage: 100 MG, QD CUMULATIVE DOSE TO FIRST REACTION: 151400.0 MG
     Route: 048
     Dates: start: 20190607
  278. DOXYCYCLINE [Concomitant]
     Active Substance: DOXYCYCLINE
     Dosage: 100 MG, QD CUMULATIVE DOSE TO FIRST REACTION: 151400.0 MG
     Route: 048
     Dates: start: 20190607
  279. DOXYCYCLINE [Concomitant]
     Active Substance: DOXYCYCLINE
     Dosage: 100 MG, QD CUMULATIVE DOSE TO FIRST REACTION: 153495.83 MG
     Route: 048
     Dates: start: 20190607
  280. DOXYCYCLINE [Concomitant]
     Active Substance: DOXYCYCLINE
     Dosage: 100 MG, QD (CUMULATIVE DOSE: 153495.83 MG)
     Route: 048
     Dates: start: 20190607
  281. DOXYCYCLINE [Concomitant]
     Active Substance: DOXYCYCLINE
     Dosage: 100 MG, QD CUMULATIVE DOSE TO FIRST REACTION: 93195.836 MG
     Dates: start: 20171012, end: 20171029
  282. DOXYCYCLINE [Concomitant]
     Active Substance: DOXYCYCLINE
     Dosage: 100 MG, QD CUMULATIVE DOSE TO FIRST REACTION: 93195.836 MG
     Dates: start: 20171012, end: 20171029
  283. DOXYCYCLINE [Concomitant]
     Active Substance: DOXYCYCLINE
     Dosage: 100 MG, QD CUMULATIVE DOSE TO FIRST REACTION: 93195.836 MG
     Dates: start: 20171012, end: 20171029
  284. DOXYCYCLINE [Concomitant]
     Active Substance: DOXYCYCLINE
     Dosage: 100 MG, QD CUMULATIVE DOSE TO FIRST REACTION: 93195.836 MG
     Dates: start: 20171012, end: 20171029
  285. DOXYCYCLINE [Concomitant]
     Active Substance: DOXYCYCLINE
     Dosage: 100 MG, QD (CUMULATIVE DOSE: 153495.83 MG)
     Route: 048
     Dates: start: 20190607
  286. DOXYCYCLINE [Concomitant]
     Active Substance: DOXYCYCLINE
     Dosage: 100 MG, QD (CUMULATIVE DOSE: 153495.83 MG)
     Route: 048
     Dates: start: 20190607
  287. DOXYCYCLINE [Concomitant]
     Active Substance: DOXYCYCLINE
     Dosage: 100 MG, QD (CUMULATIVE DOSE: 153495.83 MG)
     Route: 048
     Dates: start: 20190607
  288. DOXYCYCLINE [Concomitant]
     Active Substance: DOXYCYCLINE
     Dosage: 100 MG, QD (CUMULATIVE DOSE: 153495.83 MG)
     Route: 048
     Dates: start: 20190607
  289. DOXYCYCLINE [Concomitant]
     Active Substance: DOXYCYCLINE
     Dosage: 100 MG, QD (CUMULATIVE DOSE: 153495.83 MG)
     Route: 048
     Dates: start: 20190607
  290. DOXYCYCLINE [Concomitant]
     Active Substance: DOXYCYCLINE
     Dosage: 100 MG, QD (CUMULATIVE DOSE: 153495.83 MG)
     Route: 048
     Dates: start: 20190607
  291. DOXYCYCLINE [Concomitant]
     Active Substance: DOXYCYCLINE
     Dosage: 100 MG, QD (CUMULATIVE DOSE: 153495.83 MG)
     Route: 048
     Dates: start: 20190607
  292. DOXYCYCLINE [Concomitant]
     Active Substance: DOXYCYCLINE
     Dosage: 100 MG, QD (CUMULATIVE DOSE: 153495.83 MG)
     Route: 048
     Dates: start: 20190607
  293. BETAMETHASONE VALERATE\FUSIDIC ACID [Concomitant]
     Active Substance: BETAMETHASONE VALERATE\FUSIDIC ACID
     Indication: Product used for unknown indication
     Dosage: 0.1 %, AS NECESSARY
     Route: 061
     Dates: start: 20151123
  294. BETAMETHASONE VALERATE\FUSIDIC ACID [Concomitant]
     Active Substance: BETAMETHASONE VALERATE\FUSIDIC ACID
     Dosage: 0.1 %, AS NECESSARY
     Route: 061
     Dates: start: 20151123
  295. FYBOGEL [Concomitant]
     Active Substance: HERBALS\PLANTAGO OVATA SEED
     Indication: Constipation
     Dosage: 7 G, QD
     Route: 048
     Dates: start: 20150312, end: 20150314
  296. FYBOGEL [Concomitant]
     Active Substance: HERBALS\PLANTAGO OVATA SEED
     Dosage: 7 G
     Route: 048
     Dates: start: 20150314
  297. FYBOGEL [Concomitant]
     Active Substance: HERBALS\PLANTAGO OVATA SEED
     Dosage: 3.5 G
     Route: 048
     Dates: start: 20150314
  298. FYBOGEL [Concomitant]
     Active Substance: HERBALS\PLANTAGO OVATA SEED
     Dosage: 3.5 G (0.5 DAY)
     Route: 048
     Dates: start: 20150312, end: 20150314
  299. FYBOGEL [Concomitant]
     Active Substance: HERBALS\PLANTAGO OVATA SEED
     Dosage: UNK
  300. FYBOGEL [Concomitant]
     Active Substance: HERBALS\PLANTAGO OVATA SEED
     Dosage: 3.5 G
     Dates: start: 20150312
  301. LANSOPRAZOLE [Concomitant]
     Active Substance: LANSOPRAZOLE
     Indication: Product used for unknown indication
     Dosage: UNK (UNCOATED, ORAL)
     Route: 048
     Dates: start: 20150306, end: 20150306
  302. LANSOPRAZOLE [Concomitant]
     Active Substance: LANSOPRAZOLE
     Dosage: 30 MG, QD (UNCOATED, ORAL) (CUMULATIVE DOSE: 7290.0MG)
     Route: 048
     Dates: start: 20161123
  303. LANSOPRAZOLE [Concomitant]
     Active Substance: LANSOPRAZOLE
     Dosage: 30 MG, QD
     Dates: start: 20151123
  304. LANSOPRAZOLE [Concomitant]
     Active Substance: LANSOPRAZOLE
     Dosage: 30 MG, QD (CUMULATIVE DOSE TO FIRST REACTION: 6661.25 MG)
     Route: 048
     Dates: start: 20151123
  305. LANSOPRAZOLE [Concomitant]
     Active Substance: LANSOPRAZOLE
     Dosage: UNK (UNCOATED, ORAL)
     Route: 048
     Dates: start: 20150306
  306. LANSOPRAZOLE [Concomitant]
     Active Substance: LANSOPRAZOLE
     Dosage: UNK
     Dates: start: 20150306
  307. LANSOPRAZOLE [Concomitant]
     Active Substance: LANSOPRAZOLE
     Dosage: UNK
     Route: 048
     Dates: start: 20150306, end: 20150306
  308. LANSOPRAZOLE [Concomitant]
     Active Substance: LANSOPRAZOLE
     Dosage: 30 MG, QD (CUMULATIVE DOSE: 7290.0 MG)
     Route: 048
     Dates: start: 20151123
  309. LANSOPRAZOLE [Concomitant]
     Active Substance: LANSOPRAZOLE
     Dosage: 30 MG, QD (CUMULATIVE DOSE: 7290.0MG)
     Route: 048
     Dates: start: 20161123
  310. LANSOPRAZOLE [Concomitant]
     Active Substance: LANSOPRAZOLE
     Dosage: UNK
     Route: 048
     Dates: start: 20150306, end: 20150306
  311. LANSOPRAZOLE [Concomitant]
     Active Substance: LANSOPRAZOLE
     Dosage: UNK
     Dates: start: 20150306
  312. LANSOPRAZOLE [Concomitant]
     Active Substance: LANSOPRAZOLE
     Dosage: 30 MG, QD
     Dates: start: 20151123
  313. LOPERAMIDE [Concomitant]
     Active Substance: LOPERAMIDE
     Indication: Product used for unknown indication
     Dosage: 4 MG (UNCOATED, ORAL)
     Route: 048
     Dates: start: 20150306, end: 20150308
  314. METOCLOPRAMIDE [Concomitant]
     Active Substance: METOCLOPRAMIDE
     Indication: Product used for unknown indication
     Dosage: 30 MG, 1/WEEK SUBSEQUENT DOSE RECEIVED ON 10/MAY/2017 (UNCOATED, ORAL)(CUMULATIVE DOSE: 1888.75 MG)
     Route: 048
     Dates: start: 20150527, end: 20150708
  315. METOCLOPRAMIDE [Concomitant]
     Active Substance: METOCLOPRAMIDE
     Dosage: 30 MG, QD (UNCOATED, ORAL)(CUMULATIVE DOSE TO FIRST REACTION: 22680.0 MG)(CUMULATIVE DOSE TO FIRST R
     Route: 048
     Dates: start: 20170510, end: 2017
  316. METOCLOPRAMIDE [Concomitant]
     Active Substance: METOCLOPRAMIDE
     Dosage: 10 MG (SUBSEQUENT DOSE RECEIVED ON 10/MAY/2017) (UNCOATED, ORAL)
     Route: 048
     Dates: start: 20150527, end: 20150708
  317. METOCLOPRAMIDE [Concomitant]
     Active Substance: METOCLOPRAMIDE
     Dosage: 10 MG (UNCOATED, ORAL)
     Route: 048
     Dates: start: 20170510, end: 2017
  318. METOCLOPRAMIDE [Concomitant]
     Active Substance: METOCLOPRAMIDE
     Dosage: 400 MG (UNCOATED, ORAL)
     Route: 048
     Dates: start: 20171001, end: 20171008
  319. METOCLOPRAMIDE [Concomitant]
     Active Substance: METOCLOPRAMIDE
     Dosage: 10 MG (0.33 DAY)
     Dates: start: 20170510, end: 2017
  320. METOCLOPRAMIDE [Concomitant]
     Active Substance: METOCLOPRAMIDE
     Dosage: 10 MG (0.33 DAY)
     Dates: start: 20150527, end: 20150708
  321. METOCLOPRAMIDE [Concomitant]
     Active Substance: METOCLOPRAMIDE
     Dosage: 30 MG QD(UNCOATED, ORAL)(CUMULATIVE DOSE TO FIRST REACTION: 1260.0 MG )
     Route: 048
     Dates: start: 20150527, end: 20150708
  322. METOCLOPRAMIDE [Concomitant]
     Active Substance: METOCLOPRAMIDE
     Dosage: 400 MG
     Dates: start: 20171001
  323. METOCLOPRAMIDE [Concomitant]
     Active Substance: METOCLOPRAMIDE
     Dosage: 10 MG (SUBSEQUENT DOSE RECEIVED ON 10/MAY/2017) (CUMULATIVE DOSE: 1290 MG)
     Dates: start: 20150527, end: 20150708
  324. METOCLOPRAMIDE [Concomitant]
     Active Substance: METOCLOPRAMIDE
     Dosage: 10 MG, TID (0.33 DAY)
     Route: 048
     Dates: start: 20170510, end: 2017
  325. METOCLOPRAMIDE [Concomitant]
     Active Substance: METOCLOPRAMIDE
     Dosage: 400 MG (CUMULATIVE DOSE: 1290 MG)
     Dates: start: 20171001, end: 20171008
  326. METOCLOPRAMIDE [Concomitant]
     Active Substance: METOCLOPRAMIDE
     Dosage: 10 MG, TID (0.33 DAY) (CUMULATIVE DOSE: 1290 MG)
     Route: 048
     Dates: start: 20150527, end: 20150708
  327. METOCLOPRAMIDE [Concomitant]
     Active Substance: METOCLOPRAMIDE
     Dosage: 10 MG (CUMULATIVE DOSE: 1290 MG)
     Route: 048
     Dates: start: 20170510, end: 2017
  328. METOCLOPRAMIDE [Concomitant]
     Active Substance: METOCLOPRAMIDE
     Dosage: 2 OTHER (CUMULATIVE DOSE: 1290 MG)
     Dates: start: 20170510
  329. METOCLOPRAMIDE [Concomitant]
     Active Substance: METOCLOPRAMIDE
     Dosage: 30 MG, QD (UNCOATED, ORAL)(CUMULATIVE DOSE TO FIRST REACTION: 22680.0 MG)(CUMULATIVE DOSE TO FIRST R
     Route: 048
     Dates: start: 20170510, end: 2017
  330. METOCLOPRAMIDE [Concomitant]
     Active Substance: METOCLOPRAMIDE
     Dosage: 10 MG (SUBSEQUENT DOSE RECEIVED ON 10/MAY/2017)
     Route: 048
     Dates: start: 20150527, end: 20150708
  331. METOCLOPRAMIDE [Concomitant]
     Active Substance: METOCLOPRAMIDE
     Dosage: 10 MG (SUBSEQUENT DOSE RECEIVED ON 10/MAY/2017) (UNCOATED, ORAL)
     Route: 048
     Dates: start: 20150527, end: 20150708
  332. METOCLOPRAMIDE [Concomitant]
     Active Substance: METOCLOPRAMIDE
     Dosage: 1200 MG, QD
     Route: 048
     Dates: start: 20171001, end: 20171008
  333. METOCLOPRAMIDE [Concomitant]
     Active Substance: METOCLOPRAMIDE
     Dosage: UNK
     Dates: start: 20170510
  334. METOCLOPRAMIDE [Concomitant]
     Active Substance: METOCLOPRAMIDE
     Dosage: 10 MG
     Route: 048
     Dates: start: 20170510, end: 2017
  335. METRONIDAZOLE [Concomitant]
     Active Substance: METRONIDAZOLE
     Indication: Product used for unknown indication
     Dosage: 1200 MG, QD
     Route: 048
     Dates: start: 20171001, end: 20171008
  336. METRONIDAZOLE [Concomitant]
     Active Substance: METRONIDAZOLE
     Dosage: 1500 MG, QD
     Route: 048
     Dates: start: 20171030, end: 20171105
  337. METRONIDAZOLE [Concomitant]
     Active Substance: METRONIDAZOLE
     Dosage: 400 MG
     Dates: start: 20171001, end: 20171008
  338. METRONIDAZOLE [Concomitant]
     Active Substance: METRONIDAZOLE
     Dosage: 500 MG (0.33 DAY)
     Route: 048
     Dates: start: 20171030, end: 20171105
  339. METRONIDAZOLE [Concomitant]
     Active Substance: METRONIDAZOLE
     Dosage: 500 MG
     Route: 048
     Dates: start: 20171030, end: 20171105
  340. METRONIDAZOLE [Concomitant]
     Active Substance: METRONIDAZOLE
     Dosage: 1500 MG
     Route: 048
     Dates: start: 20171030, end: 20171105
  341. METRONIDAZOLE [Concomitant]
     Active Substance: METRONIDAZOLE
     Dosage: 1200 MG, QD (CUMULATIVE DOSE TO FIRST REACTION: 1105150.0 MG)
     Route: 048
     Dates: start: 20171001, end: 20171008
  342. MOVICOL [Concomitant]
     Active Substance: POLYETHYLENE GLYCOL 3350\POTASSIUM CHLORIDE\SODIUM BICARBONATE\SODIUM CHLORIDE
     Indication: Product used for unknown indication
     Dosage: 2 OTHER
     Route: 048
     Dates: start: 20170510
  343. MOVICOL [Concomitant]
     Active Substance: POLYETHYLENE GLYCOL 3350\POTASSIUM CHLORIDE\SODIUM BICARBONATE\SODIUM CHLORIDE
     Dosage: UNK (2 OTHER)
     Route: 048
     Dates: start: 20170510
  344. NAPROXEN [Concomitant]
     Active Substance: NAPROXEN
     Indication: Product used for unknown indication
     Dosage: 250 MG SUBSEQUENT DOSE RECEIVED ON 16/JAN/2017, 02/AUG/2017 (UNCOATED, ORAL)
     Route: 048
     Dates: start: 20141128
  345. NAPROXEN [Concomitant]
     Active Substance: NAPROXEN
     Dosage: 250 MG, (UNCOATED, ORAL)
     Route: 048
     Dates: start: 20170116, end: 20170116
  346. NAPROXEN [Concomitant]
     Active Substance: NAPROXEN
     Dosage: 250 MG (UNCOATED, ORAL)
     Dates: start: 20170802, end: 20170807
  347. NAPROXEN [Concomitant]
     Active Substance: NAPROXEN
     Dosage: 250 MG (UNCOATED, ORAL), AS NECESSARY
     Route: 048
     Dates: start: 20170802
  348. NAPROXEN [Concomitant]
     Active Substance: NAPROXEN
     Dosage: 250 MG, PRN (UNCOATED, ORAL), AS NECESSARY
     Route: 048
  349. NAPROXEN [Concomitant]
     Active Substance: NAPROXEN
     Dosage: 250 MG
     Dates: start: 20170802
  350. NAPROXEN [Concomitant]
     Active Substance: NAPROXEN
     Dosage: 250 MG SUBSEQUENT DOSE RECEIVED ON 16/JAN/2017, 02/AUG/2017)
     Route: 048
     Dates: start: 20141128
  351. NAPROXEN [Concomitant]
     Active Substance: NAPROXEN
     Dosage: 250 MG
     Dates: start: 20141128, end: 20191015
  352. NAPROXEN [Concomitant]
     Active Substance: NAPROXEN
     Dosage: 250 MG
     Route: 048
     Dates: start: 20170802
  353. NAPROXEN [Concomitant]
     Active Substance: NAPROXEN
     Dosage: 250 MG SUBSEQUENT DOSE RECEIVED ON 16/JAN/2017, 02/AUG/2017 (UNCOATED, ORAL)
     Route: 048
     Dates: start: 20141128, end: 20191015
  354. OMEPRAZOLE [Concomitant]
     Active Substance: OMEPRAZOLE
     Indication: Product used for unknown indication
     Dosage: 20 MG SUBSEQUENT DOSE RECEIVED ON 21 /JUN/2017 (UNCOATED, ORAL)
     Route: 042
     Dates: start: 20170530, end: 20170530
  355. OMEPRAZOLE [Concomitant]
     Active Substance: OMEPRAZOLE
     Dosage: 20 MG (UNCOATED, ORAL) (CUMULATIVE DOSE: 16279.167 MG)
     Route: 060
     Dates: start: 20170616, end: 20170621
  356. OMEPRAZOLE [Concomitant]
     Active Substance: OMEPRAZOLE
     Dosage: 20 MG (0.5 DAY)
     Dates: start: 20170531, end: 20170605
  357. OMEPRAZOLE [Concomitant]
     Active Substance: OMEPRAZOLE
     Dosage: 20 MG, DAILY (UNCOATED, ORAL) (CUMULATIVE DOSE TO FIRST REACTION: 15860.0 MG )
     Route: 060
     Dates: start: 20170616, end: 20170621
  358. OMEPRAZOLE [Concomitant]
     Active Substance: OMEPRAZOLE
     Dosage: 20 MG(CUMULATIVE DOSE TO FIRST REACTION: 15860.0 MG)
     Route: 048
     Dates: start: 20170616, end: 20170621
  359. OMEPRAZOLE [Concomitant]
     Active Substance: OMEPRAZOLE
     Dosage: 40 MG, DAILY (UNCOATED, ORAL)(CUMULATIVE DOSE TO FIRST REACTION: 31080.0 MG)
     Route: 048
     Dates: start: 20170531, end: 20170605
  360. OMEPRAZOLE [Concomitant]
     Active Substance: OMEPRAZOLE
     Dosage: 40 MG, DAILY (UNCOATED, ORAL)(CUMULATIVE DOSE TO FIRST REACTION: 31918.334 MG)
     Route: 048
     Dates: start: 20170531, end: 20170605
  361. OMEPRAZOLE [Concomitant]
     Active Substance: OMEPRAZOLE
     Dosage: 20 MG (SUBSEQUENT DOSE RECEIVED ON 21 /JUN/2017 (CUMULATIVE DOSE: 240 MG)
     Route: 042
     Dates: start: 20170530, end: 20170530
  362. OMEPRAZOLE [Concomitant]
     Active Substance: OMEPRAZOLE
     Dosage: 20 MG, QD (CUMULATIVE DOSE: 240 MG)
     Route: 060
     Dates: start: 20170616, end: 20170621
  363. OMEPRAZOLE [Concomitant]
     Active Substance: OMEPRAZOLE
     Dosage: 20 MG (0.5 DAY) (CUMULATIVE DOSE: 240 MG)
     Route: 048
     Dates: start: 20170531, end: 20170605
  364. OMEPRAZOLE [Concomitant]
     Active Substance: OMEPRAZOLE
     Dosage: 20 MG (0.5 DAY)
     Route: 048
     Dates: start: 20170531, end: 20170605
  365. ONDANSETRON [Concomitant]
     Active Substance: ONDANSETRON
     Indication: Product used for unknown indication
     Dosage: 16 MG, QD (CUMULATIVE DOSE: 1007.3333 MG)
     Route: 042
     Dates: start: 20150527, end: 20150608
  366. ONDANSETRON [Concomitant]
     Active Substance: ONDANSETRON
     Dosage: 8 MG, BID
     Route: 042
     Dates: start: 20150527, end: 20150608
  367. ONDANSETRON [Concomitant]
     Active Substance: ONDANSETRON
     Dosage: 8 MG (0.5 DAY)
     Dates: start: 20150527, end: 20150608
  368. ONDANSETRON [Concomitant]
     Active Substance: ONDANSETRON
     Dosage: 16 MG, QD(CUMULATIVE DOSE TO FIRST REACTION: 672.0 MG)
     Route: 042
     Dates: start: 20150527, end: 20150608
  369. ONDANSETRON [Concomitant]
     Active Substance: ONDANSETRON
     Dosage: 16 MG, QD (CUMULATIVE DOSE: 1007.3333 MG)
     Route: 042
     Dates: start: 20150527, end: 20150608
  370. ACETAMINOPHEN [Concomitant]
     Active Substance: ACETAMINOPHEN
     Indication: Product used for unknown indication
     Dosage: 2000 MG, QD
     Route: 048
     Dates: start: 20171001, end: 20171008
  371. ACETAMINOPHEN [Concomitant]
     Active Substance: ACETAMINOPHEN
     Dosage: 500 MG, QID
     Route: 048
     Dates: start: 20171001, end: 20171008
  372. ACETAMINOPHEN [Concomitant]
     Active Substance: ACETAMINOPHEN
     Dosage: UNK
  373. ACETAMINOPHEN [Concomitant]
     Active Substance: ACETAMINOPHEN
     Dosage: 500 MG, QID (1841916.6 MG )
     Route: 048
     Dates: start: 20171001, end: 20171008
  374. ACETAMINOPHEN [Concomitant]
     Active Substance: ACETAMINOPHEN
     Dosage: 500 MG, QID
     Route: 048
     Dates: start: 20171001, end: 20171008
  375. PEGFILGRASTIM [Concomitant]
     Active Substance: PEGFILGRASTIM
     Indication: Product used for unknown indication
     Dosage: 6 MG EVERY 3 WEEKS
     Route: 058
     Dates: start: 20150211, end: 20150709
  376. PEGFILGRASTIM [Concomitant]
     Active Substance: PEGFILGRASTIM
     Dosage: 6 MG, TIW (CUMULATIVE DOSE: 48 MG)
     Route: 058
     Dates: start: 20150211, end: 20150709
  377. PEGFILGRASTIM [Concomitant]
     Active Substance: PEGFILGRASTIM
     Dosage: 6 MG
     Dates: start: 20150211, end: 20150709
  378. PEGFILGRASTIM [Concomitant]
     Active Substance: PEGFILGRASTIM
     Dosage: 6 MG (CUMULATIVE DOSE: 48 MG)
     Dates: start: 20150211, end: 20150709
  379. SUDAFED NASAL DECONGESTANT MAXIMUM STRENGTH [Concomitant]
     Active Substance: PSEUDOEPHEDRINE HYDROCHLORIDE
     Indication: Product used for unknown indication
     Dosage: 60 MG (UNCOATED, ORAL)
     Route: 048
     Dates: start: 20160113, end: 20160203
  380. SUDAFED NASAL DECONGESTANT MAXIMUM STRENGTH [Concomitant]
     Active Substance: PSEUDOEPHEDRINE HYDROCHLORIDE
     Dosage: 60 MG,(UNCOATED, ORAL) AS NECESSARY
     Route: 048
     Dates: start: 20160113
  381. SUDAFED NASAL DECONGESTANT MAXIMUM STRENGTH [Concomitant]
     Active Substance: PSEUDOEPHEDRINE HYDROCHLORIDE
     Dosage: 60 MG
     Route: 048
     Dates: start: 20160113, end: 20160203
  382. SUDAFED NASAL DECONGESTANT MAXIMUM STRENGTH [Concomitant]
     Active Substance: PSEUDOEPHEDRINE HYDROCHLORIDE
     Dosage: 60 MG
     Dates: start: 20160113
  383. SUDAFED NASAL DECONGESTANT MAXIMUM STRENGTH [Concomitant]
     Active Substance: PSEUDOEPHEDRINE HYDROCHLORIDE
     Dosage: 60 MG,(UNCOATED, ORAL) AS NECESSARY
     Route: 048
     Dates: start: 20160113, end: 20160203
  384. ZOMETA [Concomitant]
     Active Substance: ZOLEDRONIC ACID
     Indication: Product used for unknown indication
     Dosage: 3 MG EVERY 3 WEEKS (UNCOATED, ORAL)
     Route: 042
     Dates: start: 20151111
  385. ZOMETA [Concomitant]
     Active Substance: ZOLEDRONIC ACID
     Dosage: 3 MG, TIW (UNCOATED, ORAL)
     Route: 042
     Dates: start: 20151111
  386. ZOMETA [Concomitant]
     Active Substance: ZOLEDRONIC ACID
     Dosage: 3 MG
     Dates: start: 20151111
  387. ZOMETA [Concomitant]
     Active Substance: ZOLEDRONIC ACID
     Dosage: 3 MG
     Route: 042
     Dates: start: 20151111
  388. ZOMETA [Concomitant]
     Active Substance: ZOLEDRONIC ACID
     Dosage: 3 MG
     Route: 042
     Dates: start: 20151111

REACTIONS (20)
  - Tooth abscess [Recovered/Resolved]
  - Tooth infection [Recovered/Resolved]
  - Blood calcium decreased [Recovered/Resolved]
  - Tooth abscess [Recovered/Resolved]
  - Neuropathy peripheral [Recovered/Resolved]
  - Dermatitis acneiform [Recovered/Resolved with Sequelae]
  - Tooth loss [Recovered/Resolved]
  - Onychomadesis [Recovered/Resolved]
  - Skin fissures [Recovered/Resolved]
  - Joint stiffness [Recovered/Resolved]
  - Facial pain [Recovered/Resolved]
  - Arthralgia [Recovered/Resolved]
  - Anxiety [Recovered/Resolved]
  - Alopecia [Recovered/Resolved]
  - Dry skin [Recovered/Resolved]
  - Weight decreased [Recovered/Resolved]
  - Back pain [Recovered/Resolved]
  - Tooth abscess [Not Recovered/Not Resolved]
  - Off label use [Unknown]
  - Off label use [Unknown]

NARRATIVE: CASE EVENT DATE: 20150325
